FAERS Safety Report 10381026 (Version 1)
Quarter: 2014Q3

REPORT INFORMATION
  Report Type: Spontaneous
  Country: US (occurrence: US)
  Receive Date: 20140813
  Receipt Date: 20140813
  Transmission Date: 20150326
  Serious: Yes (Hospitalization, Other)
  Sender: FDA-Public Use
  Company Number: US-SA-2014SA107620

PATIENT
  Age: 62 Year
  Sex: Male

DRUGS (47)
  1. LANTUS [Suspect]
     Active Substance: INSULIN GLARGINE
     Indication: DIABETES MELLITUS
     Dosage: DOSE:5 UNIT(S)
     Route: 065
  2. CISATRACURIUM [Concomitant]
     Active Substance: CISATRACURIUM
  3. PIOGLITAZONE [Concomitant]
     Active Substance: PIOGLITAZONE
  4. ASPIRIN. [Concomitant]
     Active Substance: ASPIRIN
  5. OMEPRAZOLE. [Concomitant]
     Active Substance: OMEPRAZOLE
  6. AMLODIPINE [Concomitant]
     Active Substance: AMLODIPINE BESYLATE
  7. SEPTRA [Concomitant]
     Active Substance: SULFAMETHOXAZOLE\TRIMETHOPRIM
  8. THYMOGLOBULIN [Concomitant]
     Active Substance: LAPINE T-LYMPHOCYTE IMMUNE GLOBULIN
  9. LANTUS [Suspect]
     Active Substance: INSULIN GLARGINE
     Indication: DIABETES MELLITUS
     Route: 065
  10. CLONIDINE. [Concomitant]
     Active Substance: CLONIDINE
  11. DOXAZOSIN [Concomitant]
     Active Substance: DOXAZOSIN\DOXAZOSIN MESYLATE
  12. MYCOPHENOLATE MOFETIL. [Concomitant]
     Active Substance: MYCOPHENOLATE MOFETIL
  13. METHYLPREDNISOLONE [Concomitant]
     Active Substance: METHYLPREDNISOLONE
  14. PREDNISONE. [Concomitant]
     Active Substance: PREDNISONE
  15. PHENYLEPHRINE [Concomitant]
     Active Substance: PHENYLEPHRINE\PHENYLEPHRINE HYDROCHLORIDE
  16. PROPOFOL. [Concomitant]
     Active Substance: PROPOFOL
  17. NEOSTIGMINE [Concomitant]
     Active Substance: NEOSTIGMINE
  18. FLUDROCORTISONE [Concomitant]
     Active Substance: FLUDROCORTISONE
  19. MANNITOL. [Concomitant]
     Active Substance: MANNITOL
  20. FENTANYL. [Concomitant]
     Active Substance: FENTANYL
  21. HEPARIN [Concomitant]
     Active Substance: HEPARIN SODIUM
  22. DOCUSATE SODIUM. [Concomitant]
     Active Substance: DOCUSATE SODIUM
  23. LANTUS [Suspect]
     Active Substance: INSULIN GLARGINE
     Indication: DIABETES MELLITUS
     Dosage: DOSE:100 UNIT(S)
     Route: 065
     Dates: start: 20110211
  24. GABAPENTIN. [Concomitant]
     Active Substance: GABAPENTIN
  25. ACETAMINOPHEN. [Concomitant]
     Active Substance: ACETAMINOPHEN
  26. MORPHINE SULFATE. [Concomitant]
     Active Substance: MORPHINE SULFATE
  27. KAYEXALATE [Concomitant]
     Active Substance: SODIUM POLYSTYRENE SULFONATE
  28. DIPHENHYDRAMINE [Concomitant]
     Active Substance: DIPHENHYDRAMINE
  29. CLOTRIMAZOLE. [Concomitant]
     Active Substance: CLOTRIMAZOLE
  30. NORCO [Concomitant]
     Active Substance: ACETAMINOPHEN\HYDROCODONE BITARTRATE
  31. FAMOTIDINE. [Concomitant]
     Active Substance: FAMOTIDINE
  32. METOCLOPRAMIDE. [Concomitant]
     Active Substance: METOCLOPRAMIDE
  33. VALGANCICLOVIR [Concomitant]
     Active Substance: VALGANCICLOVIR
  34. CEFAZOLIN [Concomitant]
     Active Substance: CEFAZOLIN
  35. FUROSEMIDE. [Concomitant]
     Active Substance: FUROSEMIDE
  36. ROCURONIUM [Concomitant]
     Active Substance: ROCURONIUM BROMIDE
  37. METOPROLOL [Concomitant]
     Active Substance: METOPROLOL
  38. TERAZOSIN [Concomitant]
     Active Substance: TERAZOSIN\TERAZOSIN HYDROCHLORIDE
  39. FINASTERIDE. [Concomitant]
     Active Substance: FINASTERIDE
  40. MINOXIDIL. [Concomitant]
     Active Substance: MINOXIDIL
  41. TEMAZEPAM. [Concomitant]
     Active Substance: TEMAZEPAM
  42. DESFLURANE [Concomitant]
     Active Substance: DESFLURANE
  43. ONDANSETRON [Concomitant]
     Active Substance: ONDANSETRON
  44. GLYCOPYRROLATE. [Concomitant]
     Active Substance: GLYCOPYRROLATE
  45. HUMALOG [Concomitant]
     Active Substance: INSULIN LISPRO
  46. VICODIN [Concomitant]
     Active Substance: ACETAMINOPHEN\HYDROCODONE BITARTRATE
  47. SODIUM BICARBONATE. [Concomitant]
     Active Substance: SODIUM BICARBONATE

REACTIONS (10)
  - Cytomegalovirus test positive [Unknown]
  - Hypoglycaemia [Unknown]
  - Mental status changes [Unknown]
  - Dehydration [Unknown]
  - Diarrhoea [Unknown]
  - Renal transplant [Unknown]
  - Blood creatinine increased [Unknown]
  - Transplant dysfunction [Recovered/Resolved]
  - Leukopenia [Unknown]
  - Incorrect dose administered [Unknown]

NARRATIVE: CASE EVENT DATE: 20110216
